FAERS Safety Report 24082291 (Version 2)
Quarter: 2025Q1

REPORT INFORMATION
  Report Type: Spontaneous
  Country: JP (occurrence: JP)
  Receive Date: 20240712
  Receipt Date: 20250103
  Transmission Date: 20250409
  Serious: Yes (Other)
  Sender: ROCHE
  Company Number: JP-CHUGAI-2024023157

PATIENT
  Age: 65 Year
  Sex: Male
  Weight: 56.2 kg

DRUGS (16)
  1. TECENTRIQ [Suspect]
     Active Substance: ATEZOLIZUMAB
     Indication: Small cell lung cancer extensive stage
     Dosage: 1200 MILLIGRAM, QD
     Route: 042
     Dates: start: 20231214, end: 20240315
  2. CELLCEPT [Suspect]
     Active Substance: MYCOPHENOLATE MOFETIL
     Indication: Liver disorder
     Route: 050
     Dates: end: 20240716
  3. CARBOPLATIN [Suspect]
     Active Substance: CARBOPLATIN
     Indication: Small cell lung cancer extensive stage
     Dosage: 560 MILLIGRAM, ONCE/3WEEKS
     Route: 042
     Dates: start: 20231214, end: 20240220
  4. ETOPOSIDE [Suspect]
     Active Substance: ETOPOSIDE
     Indication: Small cell lung cancer extensive stage
     Dosage: 140 MILLIGRAM, ONCE/3WEEKS
     Route: 042
     Dates: start: 20231214, end: 20240222
  5. DECADRON [Concomitant]
     Active Substance: DEXAMETHASONE
     Route: 050
     Dates: start: 20231219
  6. DECADRON [Concomitant]
     Active Substance: DEXAMETHASONE
     Route: 050
  7. SULFAMETHOXAZOLE\TRIMETHOPRIM [Concomitant]
     Active Substance: SULFAMETHOXAZOLE\TRIMETHOPRIM
     Route: 050
     Dates: start: 20231222
  8. SULFAMETHOXAZOLE\TRIMETHOPRIM [Concomitant]
     Active Substance: SULFAMETHOXAZOLE\TRIMETHOPRIM
     Route: 050
  9. BONALON [Concomitant]
     Active Substance: ALENDRONATE SODIUM
     Route: 050
     Dates: start: 20231222
  10. BONALON [Concomitant]
     Active Substance: ALENDRONATE SODIUM
     Route: 050
  11. MAGNESIUM OXIDE [Concomitant]
     Active Substance: MAGNESIUM OXIDE
     Route: 050
  12. MAGNESIUM OXIDE [Concomitant]
     Active Substance: MAGNESIUM OXIDE
     Route: 050
  13. ZINC ACETATE [Concomitant]
     Active Substance: ZINC ACETATE
     Route: 050
  14. ZINC ACETATE [Concomitant]
     Active Substance: ZINC ACETATE
     Route: 050
  15. VONOPRAZAN FUMARATE [Concomitant]
     Active Substance: VONOPRAZAN FUMARATE
     Route: 065
     Dates: start: 20240124
  16. MIYA-BM [Concomitant]
     Active Substance: CLOSTRIDIUM BUTYRICUM SPORES STRAIN M-55
     Route: 065
     Dates: start: 20240124

REACTIONS (2)
  - Liver disorder [Recovered/Resolved]
  - Off label use [Unknown]

NARRATIVE: CASE EVENT DATE: 20240405
